FAERS Safety Report 19879554 (Version 1)
Quarter: 2021Q3

REPORT INFORMATION
  Report Type: Spontaneous
  Country: IN (occurrence: IN)
  Receive Date: 20210924
  Receipt Date: 20210924
  Transmission Date: 20211014
  Serious: Yes (Death)
  Sender: FDA-Public Use
  Company Number: IN-PFIZER INC-2021375872

PATIENT
  Age: 58 Year
  Sex: Male

DRUGS (1)
  1. DACOPLICE [Suspect]
     Active Substance: DACOMITINIB
     Dosage: 30 MG, ONCE DAILY
     Route: 048
     Dates: start: 20210323

REACTIONS (1)
  - Death [Fatal]
